FAERS Safety Report 5458193-3 (Version None)
Quarter: 2007Q3

REPORT INFORMATION
  Report Type: 
  Country: None (occurrence: None)
  Receive Date: 20070917
  Receipt Date: 20070825
  Transmission Date: 20080115
  Serious: Yes (Hospitalization)
  Sender: FDA-Public Use
  Company Number: T07-ARG-03614-01

PATIENT
  Age: 80 Year
  Sex: Female
  Weight: 73 kg

DRUGS (7)
  1. MEMANTINE HCL [Suspect]
     Indication: DEMENTIA ALZHEIMER'S TYPE
     Dosage: 28 MG QD PO
     Route: 048
     Dates: start: 20070706
  2. HUMAN INSULIN (INSULIN HUMAN) [Concomitant]
  3. OLANZAPINE [Concomitant]
  4. PAROXETINE [Concomitant]
  5. DONEPEZIL HCL [Concomitant]
  6. ALPRAZOLAM [Concomitant]
  7. OXYBUTYNIN CHLORIDE [Concomitant]

REACTIONS (6)
  - DERMATITIS BULLOUS [None]
  - DIABETES MELLITUS INADEQUATE CONTROL [None]
  - DIABETIC FOOT [None]
  - LOCALISED INFECTION [None]
  - MALAISE [None]
  - VARICOSE VEIN [None]
